FAERS Safety Report 5626060-8 (Version None)
Quarter: 2008Q1

REPORT INFORMATION
  Report Type: 
  Country: None (occurrence: None)
  Receive Date: 20080213
  Receipt Date: 20080213
  Transmission Date: 20080703
  Serious: Yes (Life-Threatening, Other)
  Sender: FDA-Public Use
  Company Number: None

PATIENT
  Age: 69 Year
  Sex: Male
  Weight: 91.6266 kg

DRUGS (1)
  1. CHANTIX [Suspect]
     Indication: SMOKING CESSATION THERAPY
     Dosage: 2 TABS  TWICE DAILY PO
     Route: 048
     Dates: start: 20070407, end: 20070607

REACTIONS (10)
  - AGEUSIA [None]
  - ANOSMIA [None]
  - APHONIA [None]
  - DEPRESSION [None]
  - DIZZINESS [None]
  - DYSKINESIA [None]
  - EYE DISORDER [None]
  - MUSCLE SPASMS [None]
  - TREMOR [None]
  - WEIGHT DECREASED [None]
